FAERS Safety Report 5480376-7 (Version None)
Quarter: 2007Q4

REPORT INFORMATION
  Report Type: 
  Country: None (occurrence: None)
  Receive Date: 20071004
  Receipt Date: 20071004
  Transmission Date: 20080405
  Serious: Yes (Hospitalization)
  Sender: FDA-Public Use
  Company Number: None

PATIENT
  Sex: Female
  Weight: 64 kg

DRUGS (1)
  1. NOLVADEX [Suspect]
     Dosage: 20 MG

REACTIONS (1)
  - TRANSIENT ISCHAEMIC ATTACK [None]
